FAERS Safety Report 24120877 (Version 1)
Quarter: 2024Q3

REPORT INFORMATION
  Report Type: Spontaneous
  Country: US (occurrence: US)
  Receive Date: 20240722
  Receipt Date: 20240722
  Transmission Date: 20241017
  Serious: Yes (Other)
  Sender: PERRIGO
  Company Number: US-PERRIGO-24US006751

PATIENT
  Sex: Female

DRUGS (1)
  1. OPILL [Suspect]
     Active Substance: NORGESTREL
     Indication: Product used for unknown indication
     Dosage: UNKNOWN, UNKNOWN
     Route: 048
     Dates: start: 2024

REACTIONS (2)
  - Psychotic symptom [Unknown]
  - Hallucination, auditory [Unknown]

NARRATIVE: CASE EVENT DATE: 20240101
